FAERS Safety Report 9628659 (Version 1)
Quarter: 2013Q4

REPORT INFORMATION
  Report Type: Report from Study
  Country: EG (occurrence: EG)
  Receive Date: 20131017
  Receipt Date: 20131017
  Transmission Date: 20140711
  Serious: Yes (Hospitalization)
  Sender: FDA-Public Use
  Company Number: EG-SA-2013SA103470

PATIENT
  Age: 49 Year
  Sex: Male

DRUGS (2)
  1. LANTUS [Suspect]
     Indication: TYPE 2 DIABETES MELLITUS
     Dosage: DOSAGE: 20 IU/DAY INCREASED TO 22 IU/DAY
     Route: 058
     Dates: start: 20110517
  2. LANTUS [Suspect]
     Indication: TYPE 2 DIABETES MELLITUS
     Dosage: DOSAGE: 20 IU/DAY INCREASED TO 22 IU/DAY
     Route: 058

REACTIONS (1)
  - Neoplasm malignant [Recovered/Resolved]
